FAERS Safety Report 5988253-X (Version None)
Quarter: 2008Q4

REPORT INFORMATION
  Report Type: 
  Country: None (occurrence: None)
  Receive Date: 20081204
  Receipt Date: 20081120
  Transmission Date: 20090506
  Serious: Yes (Hospitalization)
  Sender: FDA-Public Use
  Company Number: KV200800419

PATIENT
  Age: 79 Year
  Sex: Female
  Weight: 63.5 kg

DRUGS (2)
  1. PROPAFENONE HYDROCHLORIDE [Suspect]
     Indication: ARRHYTHMIA
     Dosage: 150 MG, TID, ORAL
     Route: 048
     Dates: start: 20060101
  2. ATENOLOL [Concomitant]

REACTIONS (4)
  - CYSTITIS [None]
  - DIZZINESS [None]
  - LETHARGY [None]
  - PRODUCT QUALITY ISSUE [None]
